FAERS Safety Report 5333742-4 (Version None)
Quarter: 2007Q2

REPORT INFORMATION
  Report Type: 
  Country: None (occurrence: None)
  Receive Date: 20070308
  Receipt Date: 20070124
  Transmission Date: 20071010
  Serious: No
  Sender: FDA-Public Use
  Company Number: 2007-BP-01196BP

PATIENT
  Age: 68 Year
  Sex: Female

DRUGS (2)
  1. SPIRIVA [Suspect]
     Indication: CHRONIC OBSTRUCTIVE PULMONARY DISEASE
     Dosage: 18 MCG (18 MCG, 1 PUFF QD), PO
     Route: 048
     Dates: start: 20070118
  2. COMBIVENT [Concomitant]

REACTIONS (2)
  - PALPITATIONS [None]
  - PARAESTHESIA ORAL [None]
